FAERS Safety Report 12709511 (Version 2)
Quarter: 2016Q3

REPORT INFORMATION
  Report Type: Report from Study
  Country: CA (occurrence: CA)
  Receive Date: 20160902
  Receipt Date: 20160906
  Transmission Date: 20161109
  Serious: Yes (Other)
  Sender: FDA-Public Use
  Company Number: CA-JNJFOC-20160819003

PATIENT
  Age: 33 Year
  Sex: Female
  Weight: 67 kg

DRUGS (1)
  1. REMICADE [Suspect]
     Active Substance: INFLIXIMAB
     Indication: CROHN^S DISEASE
     Route: 042
     Dates: start: 20100713, end: 20160825

REACTIONS (8)
  - Chest discomfort [Unknown]
  - Ocular hyperaemia [Unknown]
  - Infusion related reaction [Unknown]
  - Adverse reaction [Unknown]
  - Oxygen saturation decreased [Recovering/Resolving]
  - Drug ineffective [Unknown]
  - Defaecation urgency [Unknown]
  - Malaise [Unknown]

NARRATIVE: CASE EVENT DATE: 2016
